FAERS Safety Report 11625676 (Version 5)
Quarter: 2016Q1

REPORT INFORMATION
  Report Type: Spontaneous
  Country: US (occurrence: US)
  Receive Date: 20151013
  Receipt Date: 20160308
  Transmission Date: 20160525
  Serious: Yes (Disabling)
  Sender: FDA-Public Use
  Company Number: US-ASTRAZENECA-2012SE74382

PATIENT
  Age: 56 Year
  Sex: Male
  Weight: 108.9 kg

DRUGS (29)
  1. PRAVASTATIN [Concomitant]
     Active Substance: PRAVASTATIN\PRAVASTATIN SODIUM
     Dates: start: 20130131
  2. LISINOPRIL. [Concomitant]
     Active Substance: LISINOPRIL
     Dates: start: 20130131
  3. TAMSULOSIN [Concomitant]
     Active Substance: TAMSULOSIN
  4. ADVAIR DISKUS [Concomitant]
     Active Substance: FLUTICASONE PROPIONATE\SALMETEROL XINAFOATE
     Dosage: INL 1 PUFF PO BID
  5. CRESTOR [Suspect]
     Active Substance: ROSUVASTATIN CALCIUM
     Indication: BLOOD CHOLESTEROL INCREASED
     Route: 048
     Dates: start: 20150217
  6. CRESTOR [Suspect]
     Active Substance: ROSUVASTATIN CALCIUM
     Indication: BLOOD CHOLESTEROL INCREASED
     Route: 048
     Dates: start: 2005, end: 201504
  7. LORAZEPAM. [Concomitant]
     Active Substance: LORAZEPAM
     Dates: start: 20130131
  8. SINGULAIR [Concomitant]
     Active Substance: MONTELUKAST SODIUM
  9. GABAPENTIN. [Concomitant]
     Active Substance: GABAPENTIN
     Route: 048
  10. PRAVASTATIN [Concomitant]
     Active Substance: PRAVASTATIN\PRAVASTATIN SODIUM
     Dates: start: 2010
  11. LASIX [Concomitant]
     Active Substance: FUROSEMIDE
     Route: 048
  12. MELOXICAM. [Concomitant]
     Active Substance: MELOXICAM
     Route: 048
  13. NEXIUM [Concomitant]
     Active Substance: ESOMEPRAZOLE MAGNESIUM
     Indication: DYSPEPSIA
     Dates: start: 20130131
  14. METFORMIN [Concomitant]
     Active Substance: METFORMIN HYDROCHLORIDE
  15. GLYBURIDE. [Concomitant]
     Active Substance: GLYBURIDE
  16. NAMENDA [Concomitant]
     Active Substance: MEMANTINE HYDROCHLORIDE
     Route: 048
  17. ACTOS [Concomitant]
     Active Substance: PIOGLITAZONE HYDROCHLORIDE
     Route: 048
  18. ASPIRIN. [Concomitant]
     Active Substance: ASPIRIN
     Route: 048
  19. NAPROXEN. [Concomitant]
     Active Substance: NAPROXEN
     Route: 048
  20. CRESTOR [Suspect]
     Active Substance: ROSUVASTATIN CALCIUM
     Indication: BLOOD CHOLESTEROL INCREASED
     Route: 048
     Dates: start: 20131120
  21. ATENOLOL. [Concomitant]
     Active Substance: ATENOLOL
  22. TRAMADOL. [Concomitant]
     Active Substance: TRAMADOL
     Dates: start: 20130131
  23. LEXAPRO [Concomitant]
     Active Substance: ESCITALOPRAM OXALATE
  24. SYMBICORT [Concomitant]
     Active Substance: BUDESONIDE\FORMOTEROL FUMARATE DIHYDRATE
  25. ABILIFY [Concomitant]
     Active Substance: ARIPIPRAZOLE
     Route: 048
  26. PROMETHAZINE [Concomitant]
     Active Substance: PROMETHAZINE\PROMETHAZINE HYDROCHLORIDE
  27. EXELON [Concomitant]
     Active Substance: RIVASTIGMINE TARTRATE
     Dosage: 4.6MG/24H PATCH
  28. SEROQUEL [Concomitant]
     Active Substance: QUETIAPINE FUMARATE
  29. PLAVIX [Concomitant]
     Active Substance: CLOPIDOGREL BISULFATE
     Route: 048

REACTIONS (6)
  - Cardiovascular disorder [Not Recovered/Not Resolved]
  - Anxiety [Not Recovered/Not Resolved]
  - Blood pressure increased [Not Recovered/Not Resolved]
  - Type 2 diabetes mellitus [Not Recovered/Not Resolved]
  - Amnesia [Not Recovered/Not Resolved]
  - Dyspepsia [Not Recovered/Not Resolved]

NARRATIVE: CASE EVENT DATE: 2006
